FAERS Safety Report 10096181 (Version 1)
Quarter: 2014Q2

REPORT INFORMATION
  Report Type: Spontaneous
  Country: US (occurrence: US)
  Receive Date: 20140422
  Receipt Date: 20140422
  Transmission Date: 20141212
  Serious: Yes (Disabling)
  Sender: FDA-Public Use
  Company Number: US-MERCK-1404USA011261

PATIENT
  Sex: 0

DRUGS (1)
  1. PROPECIA [Suspect]

REACTIONS (1)
  - Adverse event [Unknown]
